FAERS Safety Report 4462513-6 (Version None)
Quarter: 2004Q3

REPORT INFORMATION
  Report Type: 
  Country: None (occurrence: None)
  Receive Date: 20040928
  Receipt Date: 20040914
  Transmission Date: 20050211
  Serious: Yes (Other)
  Sender: FDA-Public Use
  Company Number: 2004223214GB

PATIENT
  Sex: Female

DRUGS (5)
  1. CELEBREX [Suspect]
     Indication: OSTEOARTHRITIS
     Dosage: 100 MG, BID, ORAL
     Route: 048
     Dates: start: 20040701
  2. LEVOTHYROXINE SODIUM [Concomitant]
  3. AMLODIPINE [Concomitant]
  4. GAVISCON [Concomitant]
  5. OMEPRAZOLE [Concomitant]

REACTIONS (4)
  - CONDITION AGGRAVATED [None]
  - GLAUCOMA [None]
  - MACULAR DEGENERATION [None]
  - VISION BLURRED [None]
